FAERS Safety Report 10335797 (Version 2)
Quarter: 2014Q3

REPORT INFORMATION
  Report Type: Spontaneous
  Country: US (occurrence: US)
  Receive Date: 20140723
  Receipt Date: 20140723
  Transmission Date: 20150326
  Serious: No
  Sender: FDA-Public Use
  Company Number: US-UNITED THERAPEUTICS-UTC-048393

PATIENT
  Age: 68 Year
  Sex: Male
  Weight: 74.83 kg

DRUGS (2)
  1. TYVASO [Suspect]
     Active Substance: TREPROSTINIL
     Indication: COR PULMONALE CHRONIC
     Dosage: 18 TO 54 MICROGRAMS (3 TO 9 BREATHS), QID
     Dates: start: 20130822
  2. REMODULIN [Suspect]
     Active Substance: TREPROSTINIL
     Indication: COR PULMONALE CHRONIC
     Dosage: 0.01 ?G/KG, CONTINUING
     Route: 058
     Dates: start: 20140430

REACTIONS (8)
  - Medication error [Recovered/Resolved]
  - Tremor [Unknown]
  - Feeling abnormal [Unknown]
  - Dyspnoea exertional [Unknown]
  - Dizziness [Unknown]
  - Dyspnoea [Unknown]
  - Suffocation feeling [Unknown]
  - Chills [Unknown]

NARRATIVE: CASE EVENT DATE: 20140520
